FAERS Safety Report 7764707-0 (Version None)
Quarter: 2011Q3

REPORT INFORMATION
  Report Type: 
  Country: None (occurrence: None)
  Receive Date: 20110919
  Receipt Date: 20110902
  Transmission Date: 20111222
  Serious: Yes (Hospitalization)
  Sender: FDA-Public Use
  Company Number: AUR-APL-2011-04916

PATIENT
  Age: 75 Year
  Sex: Male

DRUGS (2)
  1. SIMVASTATIN [Suspect]
     Indication: PROPHYLAXIS
  2. OMEPRAZOLE [Concomitant]

REACTIONS (4)
  - PALPITATIONS [None]
  - EXTRASYSTOLES [None]
  - BODY TEMPERATURE DECREASED [None]
  - BRADYCARDIA [None]
